FAERS Safety Report 25604999 (Version 1)
Quarter: 2025Q3

REPORT INFORMATION
  Report Type: Spontaneous
  Country: US (occurrence: US)
  Receive Date: 20250725
  Receipt Date: 20250725
  Transmission Date: 20251020
  Serious: No
  Sender: ROCHE
  Company Number: US-ROCHE-10000344414

PATIENT
  Age: 23 Year
  Sex: Female

DRUGS (1)
  1. OCREVUS [Suspect]
     Active Substance: OCRELIZUMAB
     Indication: Multiple sclerosis
     Route: 042
     Dates: start: 20250714, end: 20250714

REACTIONS (2)
  - Menstruation irregular [Not Recovered/Not Resolved]
  - Tinnitus [Recovered/Resolved]

NARRATIVE: CASE EVENT DATE: 20250717
